FAERS Safety Report 7494610-5 (Version None)
Quarter: 2011Q2

REPORT INFORMATION
  Report Type: 
  Country: None (occurrence: None)
  Receive Date: 20110520
  Receipt Date: 20110504
  Transmission Date: 20111010
  Serious: No
  Sender: FDA-Public Use
  Company Number: US-B.I. PHARMACEUTICALS,INC./RIDGEFIELD-2011-BP-12392BP

PATIENT
  Age: 65 Year
  Sex: Male

DRUGS (2)
  1. PRADAXA [Suspect]
     Indication: ATRIAL FIBRILLATION
     Dosage: 300 MG
     Route: 048
     Dates: start: 20110221, end: 20110501
  2. ATENOLOL [Concomitant]
     Indication: HYPERTENSION

REACTIONS (4)
  - OPEN WOUND [None]
  - LIP INFECTION [None]
  - ABDOMINAL PAIN UPPER [None]
  - HEADACHE [None]
